FAERS Safety Report 9636747 (Version 1)
Quarter: 2013Q4

REPORT INFORMATION
  Report Type: Spontaneous
  Country: US (occurrence: US)
  Receive Date: 20131022
  Receipt Date: 20131022
  Transmission Date: 20140711
  Serious: No
  Sender: FDA-Public Use
  Company Number: US-009507513-1310USA005244

PATIENT
  Age: 30 Year
  Sex: Male

DRUGS (4)
  1. JANUVIA [Suspect]
     Indication: TYPE 2 DIABETES MELLITUS
     Dosage: 100 MG, TWICE DAILY
     Route: 048
     Dates: start: 20131006, end: 201310
  2. JANUVIA [Suspect]
     Dosage: 100 MG, ONCE DAILY
     Route: 048
     Dates: start: 201310
  3. METFORMIN [Suspect]
  4. LYRICA [Concomitant]

REACTIONS (4)
  - Depression [Unknown]
  - Decreased appetite [Unknown]
  - Fatigue [Unknown]
  - Overdose [Unknown]
